FAERS Safety Report 17798757 (Version 1)
Quarter: 2020Q2

REPORT INFORMATION
  Report Type: Spontaneous
  Country: US (occurrence: US)
  Receive Date: 20200518
  Receipt Date: 20200518
  Transmission Date: 20200714
  Serious: No
  Sender: FDA-Public Use
  Company Number: None

PATIENT
  Age: 69 Year
  Sex: Female
  Weight: 69.75 kg

DRUGS (8)
  1. ASCORBIC ACID 500 MG TABLET [Concomitant]
  2. LOVAZA 1 GM CAPSULES [Concomitant]
  3. RIZATRIPTAN 10 MG ODT TABLET [Concomitant]
  4. TOPIRAMATE 100 MG TABLET [Concomitant]
     Active Substance: TOPIRAMATE
  5. SUMATRIPTAN 6MG/0.5ML PEN [Concomitant]
  6. AIMOVIG [Suspect]
     Active Substance: ERENUMAB-AOOE
     Indication: MIGRAINE
     Dosage: ?          OTHER FREQUENCY:EVERY 28 DAYS;?
     Route: 058
     Dates: start: 20191108
  7. PROPRANOLOL 120 MG CAPSULE [Concomitant]
  8. OMEPRAZOLE 20 MG CAPSULE [Concomitant]
     Active Substance: OMEPRAZOLE

REACTIONS (1)
  - Alopecia [None]

NARRATIVE: CASE EVENT DATE: 20200518
